FAERS Safety Report 7936789-4 (Version None)
Quarter: 2011Q4

REPORT INFORMATION
  Report Type: 
  Country: None (occurrence: None)
  Receive Date: 20111110
  Receipt Date: 20111102
  Transmission Date: 20120403
  Serious: Yes (Other)
  Sender: FDA-Public Use
  Company Number: 2011029249

PATIENT
  Age: 50 Year
  Sex: Female
  Weight: 63.5036 kg

DRUGS (9)
  1. HIZENTRA [Suspect]
     Indication: IMMUNODEFICIENCY COMMON VARIABLE
     Dosage: 10 G 1X/WEEK, INFUSED 50ML VIA 2-4 SITES OVER 1.5-2 HOURS SUBCUTANEOUS ; 2 GM 10 ML VIAL SUBCUTANEOU
     Route: 058
     Dates: start: 20110810, end: 20110810
  2. HIZENTRA [Suspect]
     Indication: IMMUNODEFICIENCY COMMON VARIABLE
     Dosage: 10 G 1X/WEEK, INFUSED 50ML VIA 2-4 SITES OVER 1.5-2 HOURS SUBCUTANEOUS ; 2 GM 10 ML VIAL SUBCUTANEOU
     Route: 058
     Dates: start: 20110208
  3. HIZENTRA [Suspect]
     Indication: IMMUNODEFICIENCY COMMON VARIABLE
     Dosage: 10 G 1X/WEEK, INFUSED 50ML VIA 2-4 SITES OVER 1.5-2 HOURS SUBCUTANEOUS ; 2 GM 10 ML VIAL SUBCUTANEOU
     Route: 058
     Dates: start: 20110523
  4. HIZENTRA [Suspect]
  5. HIZENTRA [Suspect]
  6. HIZENTRA [Suspect]
  7. HIZENTRA [Suspect]
  8. PLAQUENIL [Concomitant]
  9. HIZENTRA [Suspect]

REACTIONS (3)
  - BRONCHITIS [None]
  - SINUSITIS [None]
  - PNEUMONIA [None]
